FAERS Safety Report 6674328-9 (Version None)
Quarter: 2010Q2

REPORT INFORMATION
  Report Type: 
  Country: None (occurrence: None)
  Receive Date: 20100409
  Receipt Date: 20100331
  Transmission Date: 20101027
  Serious: Yes (Hospitalization)
  Sender: FDA-Public Use
  Company Number: US-JNJFOC-20100400796

PATIENT
  Sex: Female
  Weight: 48.54 kg

DRUGS (4)
  1. FENTANYL CITRATE [Suspect]
     Indication: ARTHRALGIA
     Route: 062
  2. FENTANYL CITRATE [Suspect]
     Route: 062
  3. FENTANYL CITRATE [Suspect]
     Route: 062
  4. FENTANYL-100 [Suspect]
     Indication: ARTHRALGIA
     Route: 062

REACTIONS (6)
  - APPLICATION SITE REACTION [None]
  - APPLICATION SITE VESICLES [None]
  - ARTERIAL OCCLUSIVE DISEASE [None]
  - FATIGUE [None]
  - MYOCARDIAL INFARCTION [None]
  - TREATMENT NONCOMPLIANCE [None]
